FAERS Safety Report 4451958-6 (Version None)
Quarter: 2004Q3

REPORT INFORMATION
  Report Type: 
  Country: None (occurrence: None)
  Receive Date: 20040917
  Receipt Date: 20040914
  Transmission Date: 20050211
  Serious: Yes (Death, Other)
  Sender: FDA-Public Use
  Company Number: US-BRISTOL-MYERS SQUIBB COMPANY-12701942

PATIENT
  Age: 54 Year
  Sex: Male
  Weight: 74 kg

DRUGS (3)
  1. DIDANOSINE [Suspect]
     Indication: HIV INFECTION
     Dosage: ONCE DAILY
     Dates: start: 20030905
  2. COMBIVIR [Suspect]
     Indication: HIV INFECTION
     Dates: start: 20030905
  3. VIREAD [Suspect]
     Indication: HIV INFECTION
     Dosage: ONCE DAILY
     Dates: start: 20030905

REACTIONS (2)
  - CHEST PAIN [None]
  - DEATH [None]
